FAERS Safety Report 21172266 (Version 2)
Quarter: 2022Q3

REPORT INFORMATION
  Report Type: Report from Study
  Country: AE (occurrence: None)
  Receive Date: 20220804
  Receipt Date: 20220920
  Transmission Date: 20221027
  Serious: Yes (Hospitalization, Other)
  Sender: FDA-Public Use
  Company Number: AE-Merck Healthcare KGaA-9340384

PATIENT
  Age: 31 Year
  Sex: Female

DRUGS (1)
  1. MAVENCLAD [Suspect]
     Active Substance: CLADRIBINE
     Indication: Multiple sclerosis
     Dosage: MONTH ONE THERAPY
     Route: 048

REACTIONS (3)
  - White blood cell count decreased [Not Recovered/Not Resolved]
  - Lymphocyte count decreased [Not Recovered/Not Resolved]
  - Multiple sclerosis relapse [Recovered/Resolved]

NARRATIVE: CASE EVENT DATE: 20220501
